FAERS Safety Report 4804442-1 (Version None)
Quarter: 2005Q4

REPORT INFORMATION
  Report Type: 
  Country: None (occurrence: None)
  Receive Date: 20051020
  Receipt Date: 20051010
  Transmission Date: 20060501
  Serious: Yes (Death, Life-Threatening)
  Sender: FDA-Public Use
  Company Number: FR-GLAXOSMITHKLINE-B0397560A

PATIENT
  Age: 41 Year
  Sex: Male
  Weight: 78 kg

DRUGS (7)
  1. TIMENTIN [Suspect]
     Dosage: 5G THREE TIMES PER DAY
     Route: 042
     Dates: start: 20050222, end: 20050331
  2. PRIMPERAN INJ [Suspect]
     Dosage: 10MG THREE TIMES PER DAY
     Route: 042
     Dates: start: 20050222, end: 20050331
  3. TRANXENE [Suspect]
     Dosage: 10MG THREE TIMES PER DAY
     Route: 042
     Dates: start: 20050316, end: 20050331
  4. OFLOCET [Suspect]
     Dosage: 400MG TWICE PER DAY
     Route: 042
     Dates: start: 20050222, end: 20050331
  5. FLUCONAZOLE [Suspect]
     Dosage: 800MG PER DAY
     Route: 042
     Dates: start: 20050318, end: 20050331
  6. PERFALGAN [Suspect]
     Route: 042
     Dates: start: 20050222, end: 20050331
  7. SOLU-MEDROL [Concomitant]
     Route: 065
     Dates: start: 20050201

REACTIONS (15)
  - CANDIDA SEPSIS [None]
  - ERYTHEMA [None]
  - HAEMORRHAGE [None]
  - HYPERKALAEMIA [None]
  - HYPERPHOSPHATAEMIA [None]
  - INFECTION [None]
  - MUCOUS MEMBRANE DISORDER [None]
  - PAIN OF SKIN [None]
  - RENAL FAILURE ACUTE [None]
  - SKIN BURNING SENSATION [None]
  - SKIN EXFOLIATION [None]
  - SKIN LACERATION [None]
  - SKIN ULCER [None]
  - TOXIC EPIDERMAL NECROLYSIS [None]
  - TUMOUR LYSIS SYNDROME [None]
